FAERS Safety Report 9250969 (Version 1)
Quarter: 2013Q1

REPORT INFORMATION
  Report Type: Spontaneous
  Country: US (occurrence: None)
  Receive Date: 20130305
  Receipt Date: 20130305
  Transmission Date: 20140127
  Serious: Yes (Other)
  Sender: FDA-Public Use
  Company Number: 163-21880-12061982 (0)

PATIENT
  Age: 63 Year
  Sex: Male
  Weight: 113.85 kg

DRUGS (7)
  1. REVLIMID [Suspect]
     Indication: MANTLE CELL LYMPHOMA
     Dosage: FOR 21 DAYS OF 28
     Route: 048
     Dates: start: 20120608, end: 20120618
  2. METOPROLOL (METOPROLOL) [Concomitant]
  3. ALLOPURINOL [Concomitant]
  4. ALPRAZOLAM (ALPRAZOLAM) [Concomitant]
  5. ASPIRIN EC [Concomitant]
  6. OMEPRAZOLE (OMEPRAZOLE) [Concomitant]
  7. VITAMIN C [Concomitant]

REACTIONS (1)
  - Platelet count decreased [None]
